FAERS Safety Report 14366440 (Version 1)
Quarter: 2018Q1

REPORT INFORMATION
  Report Type: Spontaneous
  Country: BR (occurrence: BR)
  Receive Date: 20180109
  Receipt Date: 20180109
  Transmission Date: 20180509
  Serious: Yes (Other)
  Sender: FDA-Public Use
  Company Number: PHHY2017BR195101

PATIENT
  Sex: Male
  Weight: 84 kg

DRUGS (2)
  1. DIOVAN [Suspect]
     Active Substance: VALSARTAN
     Indication: CARDIAC DISORDER
     Dosage: 80 MG, QD
     Route: 048
  2. CERUMIN [Suspect]
     Active Substance: OXYQUINOLINE\TROLAMINE
     Indication: EXCESSIVE CERUMEN PRODUCTION
     Dosage: 3 GTT, ONCE A YEAR
     Route: 001

REACTIONS (7)
  - Cardiac aneurysm [Unknown]
  - Cardiomegaly [Unknown]
  - Myocardial infarction [Unknown]
  - Ear discomfort [Recovering/Resolving]
  - Drug ineffective [Unknown]
  - Cerebrovascular accident [Unknown]
  - Inappropriate schedule of drug administration [Unknown]

NARRATIVE: CASE EVENT DATE: 1989
